FAERS Safety Report 13940349 (Version 1)
Quarter: 2017Q3

REPORT INFORMATION
  Report Type: Spontaneous
  Country: US (occurrence: US)
  Receive Date: 20170906
  Receipt Date: 20170906
  Transmission Date: 20171127
  Serious: Yes (Other)
  Sender: FDA-Public Use
  Company Number: US-AMGEN-USASP2017132849

PATIENT
  Age: 82 Year
  Sex: Female

DRUGS (2)
  1. ENBREL [Suspect]
     Active Substance: ETANERCEPT
     Dosage: 25 MG, 2 TIMES/WK
     Route: 065
  2. ENBREL [Suspect]
     Active Substance: ETANERCEPT
     Indication: RHEUMATOID ARTHRITIS
     Dosage: 25 MG, 2 TIMES/WK
     Route: 065
     Dates: start: 2014

REACTIONS (7)
  - Knee operation [Unknown]
  - Pain [Unknown]
  - Musculoskeletal stiffness [Not Recovered/Not Resolved]
  - Gait inability [Unknown]
  - Unevaluable event [Unknown]
  - Blood blister [Recovering/Resolving]
  - Nerve compression [Unknown]

NARRATIVE: CASE EVENT DATE: 2016
